FAERS Safety Report 4665566-5 (Version None)
Quarter: 2005Q2

REPORT INFORMATION
  Report Type: 
  Country: None (occurrence: None)
  Receive Date: 20050519
  Receipt Date: 20041116
  Transmission Date: 20051028
  Serious: No
  Sender: FDA-Public Use
  Company Number: US-BRISTOL-MYERS SQUIBB COMPANY-12767661

PATIENT
  Age: 75 Year
  Sex: Male

DRUGS (1)
  1. FOSINOPRIL SODIUM TABS [Suspect]
     Route: 048

REACTIONS (1)
  - RASH PRURITIC [None]
